FAERS Safety Report 24415425 (Version 1)
Quarter: 2024Q4

REPORT INFORMATION
  Report Type: Spontaneous
  Country: US (occurrence: US)
  Receive Date: 20241009
  Receipt Date: 20241009
  Transmission Date: 20250115
  Serious: No
  Sender: CELLTRION
  Company Number: US-CELLTRION INC.-2024US001317

PATIENT

DRUGS (1)
  1. INFLECTRA [Suspect]
     Active Substance: INFLIXIMAB-DYYB
     Indication: Crohn^s disease
     Dosage: EVERY 2 WEEKS X 2 DOSE, THEN EVERY 4 WEEKS X 1 DOSE, THEN EVERY 8 WEEKS THEREAFTER
     Route: 065

REACTIONS (4)
  - Headache [Unknown]
  - Pain [Unknown]
  - Diarrhoea [Unknown]
  - Off label use [Unknown]
